FAERS Safety Report 13686882 (Version 1)
Quarter: 2017Q2

REPORT INFORMATION
  Report Type: Spontaneous
  Country: US (occurrence: US)
  Receive Date: 20170623
  Receipt Date: 20170623
  Transmission Date: 20170830
  Serious: Yes (Other)
  Sender: FDA-Public Use
  Company Number: US-SUNOVION-2017SUN002648

PATIENT
  Sex: Female
  Weight: 60.77 kg

DRUGS (5)
  1. XANAX [Concomitant]
     Active Substance: ALPRAZOLAM
     Dosage: UNK, WHEN NECESSARY
     Route: 048
  2. ADDERALL [Concomitant]
     Active Substance: AMPHETAMINE ASPARTATE\AMPHETAMINE SULFATE\DEXTROAMPHETAMINE SACCHARATE\DEXTROAMPHETAMINE SULFATE
     Dosage: 20 MG, BID
  3. ABILIFY [Concomitant]
     Active Substance: ARIPIPRAZOLE
  4. NEURONTIN [Concomitant]
     Active Substance: GABAPENTIN
     Dosage: 400 MG, BID
     Route: 048
  5. LATUDA [Suspect]
     Active Substance: LURASIDONE HYDROCHLORIDE
     Indication: BIPOLAR DISORDER
     Dosage: 80 MG, QD
     Route: 048
     Dates: start: 201705

REACTIONS (10)
  - Negative thoughts [Unknown]
  - Drug ineffective [Unknown]
  - Suicide attempt [Unknown]
  - Suicidal ideation [Unknown]
  - Arthritis [Unknown]
  - Depression [Unknown]
  - Bipolar disorder [Not Recovered/Not Resolved]
  - Back pain [Unknown]
  - Somnolence [Unknown]
  - Crying [Unknown]
